FAERS Safety Report 20506025 (Version 1)
Quarter: 2022Q1

REPORT INFORMATION
  Report Type: Spontaneous
  Country: US (occurrence: None)
  Receive Date: 20220221
  Receipt Date: 20220221
  Transmission Date: 20220423
  Serious: Yes (Disabling)
  Sender: FDA-Public Use
  Company Number: None

PATIENT
  Age: 25 Year
  Sex: Male
  Weight: 81 kg

DRUGS (1)
  1. STRATTERA [Suspect]
     Active Substance: ATOMOXETINE HYDROCHLORIDE
     Indication: Attention deficit hyperactivity disorder
     Dates: start: 20180101, end: 20210601

REACTIONS (4)
  - Urinary retention [None]
  - Retrograde ejaculation [None]
  - Therapy change [None]
  - Drug interaction [None]

NARRATIVE: CASE EVENT DATE: 20200702
